FAERS Safety Report 23245396 (Version 1)
Quarter: 2023Q4

REPORT INFORMATION
  Report Type: Spontaneous
  Country: US (occurrence: US)
  Receive Date: 20231130
  Receipt Date: 20231130
  Transmission Date: 20240110
  Serious: No
  Sender: FDA-Public Use
  Company Number: US-OPELLA-2023OHG016029

PATIENT
  Age: 82 Year
  Sex: Female
  Weight: 54.4 kg

DRUGS (21)
  1. NASACORT [Suspect]
     Active Substance: TRIAMCINOLONE ACETONIDE
     Indication: Paranasal sinus hypersecretion
  2. NASACORT [Suspect]
     Active Substance: TRIAMCINOLONE ACETONIDE
     Indication: Sinus congestion
  3. NASACORT [Suspect]
     Active Substance: TRIAMCINOLONE ACETONIDE
     Indication: Cough
  4. ADEMPAS [Suspect]
     Active Substance: RIOCIGUAT
     Indication: Product used for unknown indication
  5. TREPROSTINIL [Suspect]
     Active Substance: TREPROSTINIL
     Indication: Pulmonary arterial hypertension
     Dates: start: 20230506
  6. TYVASO DPI [Suspect]
     Active Substance: TREPROSTINIL
     Indication: Pulmonary arterial hypertension
  7. TYVASO DPI [Suspect]
     Active Substance: TREPROSTINIL
     Indication: Paranasal sinus hypersecretion
  8. TYVASO DPI [Suspect]
     Active Substance: TREPROSTINIL
     Indication: Sinus congestion
  9. PANTOPRAZOLE SODIUM [Concomitant]
     Active Substance: PANTOPRAZOLE SODIUM
  10. CALCIUM [Concomitant]
     Active Substance: CALCIUM
  11. SPIRONOLACTONE [Concomitant]
     Active Substance: SPIRONOLACTONE
  12. ACETAMINOPHEN [Concomitant]
     Active Substance: ACETAMINOPHEN
  13. HUMIRA [Concomitant]
     Active Substance: ADALIMUMAB
  14. GABAPENTIN [Concomitant]
     Active Substance: GABAPENTIN
  15. CLONAZEPAM [Concomitant]
     Active Substance: CLONAZEPAM
  16. FUROSEMIDE [Concomitant]
     Active Substance: FUROSEMIDE
  17. OPSUMIT [Concomitant]
     Active Substance: MACITENTAN
  18. SODIUM CHLORIDE [Concomitant]
     Active Substance: SODIUM CHLORIDE
  19. VITAMIN C [Concomitant]
     Active Substance: ASCORBIC ACID
  20. OXYGEN [Concomitant]
     Active Substance: OXYGEN
  21. VITAMINS [Concomitant]
     Active Substance: VITAMINS

REACTIONS (7)
  - Sinus operation [Unknown]
  - Sinus congestion [Unknown]
  - Nasal dryness [Unknown]
  - Cough [Unknown]
  - Epistaxis [Unknown]
  - Dyspnoea [Unknown]
  - Therapy non-responder [Unknown]
